FAERS Safety Report 7315643-5 (Version None)
Quarter: 2011Q1

REPORT INFORMATION
  Report Type: 
  Country: None (occurrence: None)
  Receive Date: 20110225
  Receipt Date: 20110211
  Transmission Date: 20110831
  Serious: Yes (Hospitalization)
  Sender: FDA-Public Use
  Company Number: PHHY2011JP11668

PATIENT
  Age: 73 Year
  Sex: Female

DRUGS (11)
  1. ROPIVACAINE [Suspect]
     Dosage: 2 % 2 ML/H
  2. MIDAZOLAM HCL [Suspect]
     Dosage: 3 MG, UNK
  3. PROPOFOL [Suspect]
     Dosage: 2MG/KG/H
  4. PROPOFOL [Suspect]
     Dosage: 50 MG, UNK
  5. LIDOCAINE [Suspect]
     Dosage: 1% 15 ML
  6. FENTANYL-100 [Suspect]
     Dosage: 50 UG, UNK
  7. ROPIVACAINE [Suspect]
     Dosage: 0.25 % 20 ML
  8. FLURBIPROFEN [Suspect]
     Dosage: 50 MG, UNK
  9. LIDOCAINE [Suspect]
     Dosage: 1% 3 ML
  10. MIDAZOLAM HCL [Suspect]
     Dosage: 1 MG, UNK
  11. PROPOFOL [Suspect]
     Dosage: 3-4 MG/KG/H

REACTIONS (2)
  - GRAND MAL CONVULSION [None]
  - TOXICITY TO VARIOUS AGENTS [None]
